FAERS Safety Report 4428007-9 (Version None)
Quarter: 2004Q3

REPORT INFORMATION
  Report Type: 
  Country: None (occurrence: None)
  Receive Date: 20040813
  Receipt Date: 20040806
  Transmission Date: 20050211
  Serious: No
  Sender: FDA-Public Use
  Company Number: 2004225139US

PATIENT
  Age: 75 Year
  Sex: Male

DRUGS (1)
  1. IDAMYCIN [Suspect]
     Indication: ACUTE LEUKAEMIA

REACTIONS (1)
  - NO ADVERSE DRUG EFFECT [None]
